FAERS Safety Report 18041915 (Version 1)
Quarter: 2020Q3

REPORT INFORMATION
  Report Type: Spontaneous
  Country: None (occurrence: AU)
  Receive Date: 20200720
  Receipt Date: 20200720
  Transmission Date: 20201103
  Serious: Yes (Hospitalization)
  Sender: FDA-Public Use
  Company Number: AU-ORION CORPORATION ORION PHARMA-20_00009937

PATIENT
  Age: 61 Year
  Sex: Male

DRUGS (3)
  1. ETANERCEPT [Suspect]
     Active Substance: ETANERCEPT
     Indication: RHEUMATOID ARTHRITIS
     Route: 058
  2. METHOTREXATE. [Suspect]
     Active Substance: METHOTREXATE
     Indication: RHEUMATOID ARTHRITIS
     Route: 065
  3. HYDROXYCHLOROQUINE [Suspect]
     Active Substance: HYDROXYCHLOROQUINE
     Indication: RHEUMATOID ARTHRITIS
     Route: 065

REACTIONS (10)
  - Acinetobacter bacteraemia [Recovered/Resolved]
  - Burkholderia pseudomallei infection [Recovered/Resolved]
  - Acute kidney injury [Unknown]
  - Anaemia [Unknown]
  - Hypoxia [Unknown]
  - Hyperlactacidaemia [Unknown]
  - Hypotension [Unknown]
  - Pneumonia [Unknown]
  - Intervertebral discitis [Unknown]
  - Osteomyelitis [Unknown]
